FAERS Safety Report 10965298 (Version 1)
Quarter: 2015Q1

REPORT INFORMATION
  Report Type: Spontaneous
  Country: US (occurrence: US)
  Receive Date: 20150330
  Receipt Date: 20150330
  Transmission Date: 20150721
  Serious: No
  Sender: FDA-Public Use
  Company Number: US-PFIZER INC-2015107409

PATIENT
  Age: 70 Year
  Sex: Female
  Weight: 59 kg

DRUGS (12)
  1. NEURONTIN [Suspect]
     Active Substance: GABAPENTIN
     Dosage: 200 MG, UNK
     Dates: start: 20150319
  2. NEURONTIN [Suspect]
     Active Substance: GABAPENTIN
     Dosage: 200 MG, 2X/DAY (IN THE MORNING AND AT BEDTIME)
  3. KETAMINE [Suspect]
     Active Substance: KETAMINE
     Indication: NEURALGIA
     Dosage: APPLY 1-2 GRAMS 2 TO 4 TIMES DAILY
     Route: 061
  4. ACYCLOVIR. [Concomitant]
     Active Substance: ACYCLOVIR
     Indication: ANTIVIRAL TREATMENT
     Dosage: 800 MG,5 TIMES A DAY
  5. NEURONTIN [Suspect]
     Active Substance: GABAPENTIN
     Indication: POST HERPETIC NEURALGIA
     Dosage: 100 MG, DAILY
  6. GABAPENTIN. [Suspect]
     Active Substance: GABAPENTIN
     Indication: NEURALGIA
     Dosage: APPLY 1-2 GRAMS 2 TO 4 TIMES DAILY
     Route: 061
  7. CLONIDINE. [Suspect]
     Active Substance: CLONIDINE
     Indication: NEURALGIA
     Dosage: APPLY 1-2 GRAMS 2 TO 4 TIMES DAILY
     Route: 061
  8. NORCO [Concomitant]
     Active Substance: ACETAMINOPHEN\HYDROCODONE BITARTRATE
     Indication: CHEST PAIN
     Dosage: 5/325 MG, AS NEEDED, 1 BEFORE SHE GOES TO BED
  9. NEOSPORIN [Concomitant]
     Active Substance: BACITRACIN ZINC\NEOMYCIN SULFATE\POLYMYXIN B SULFATE
     Indication: RASH
     Dosage: UNK
  10. IBUPROFEN. [Suspect]
     Active Substance: IBUPROFEN
     Indication: PAIN
     Dosage: 200 MG, UNK
     Dates: start: 201503
  11. LIDOCAINE HCL [Suspect]
     Active Substance: LIDOCAINE HYDROCHLORIDE
     Indication: NEURALGIA
     Dosage: APPLY 1-2 GRAMS 2 TO 4 TIMES DAILY
     Route: 061
  12. KEFLEX [Concomitant]
     Active Substance: CEPHALEXIN
     Indication: RASH
     Dosage: 250 MG, 4X/DAY

REACTIONS (5)
  - Drug ineffective [Not Recovered/Not Resolved]
  - Muscular weakness [Not Recovered/Not Resolved]
  - Abdominal pain upper [Not Recovered/Not Resolved]
  - Dizziness [Not Recovered/Not Resolved]
  - Feeling abnormal [Not Recovered/Not Resolved]

NARRATIVE: CASE EVENT DATE: 201503
